FAERS Safety Report 5009802-4 (Version None)
Quarter: 2006Q2

REPORT INFORMATION
  Report Type: 
  Country: None (occurrence: None)
  Receive Date: 20060524
  Receipt Date: 20060517
  Transmission Date: 20061013
  Serious: Yes (Hospitalization)
  Sender: FDA-Public Use
  Company Number: NL-AVENTIS-200615366GDDC

PATIENT
  Sex: Female
  Weight: 85 kg

DRUGS (5)
  1. AMARYL [Suspect]
     Indication: DIABETES MELLITUS
     Route: 048
     Dates: start: 20050916, end: 20051008
  2. AUGMENTIN '125' [Suspect]
     Indication: PYREXIA
     Route: 042
     Dates: start: 20050921
  3. AUGMENTIN '125' [Suspect]
     Dates: start: 20050924
  4. CALCIUM CARBONATE [Concomitant]
     Route: 048
     Dates: start: 20030724
  5. URSODEOXYCHOLIC [Concomitant]
     Route: 048
     Dates: start: 20030401

REACTIONS (4)
  - HEPATITIS [None]
  - JAUNDICE [None]
  - LICHENOID KERATOSIS [None]
  - SKIN REACTION [None]
